FAERS Safety Report 16275522 (Version 3)
Quarter: 2019Q2

REPORT INFORMATION
  Report Type: Report from Study
  Country: US (occurrence: US)
  Receive Date: 20190504
  Receipt Date: 20190510
  Transmission Date: 20190711
  Serious: No
  Sender: FDA-Public Use
  Company Number: PHEH2019US016649

PATIENT
  Sex: Male
  Weight: 122.4 kg

DRUGS (1)
  1. GLATOPA [Suspect]
     Active Substance: GLATIRAMER ACETATE
     Indication: MULTIPLE SCLEROSIS
     Dosage: 20 MG, QD (ROTATES SITES)
     Route: 058

REACTIONS (2)
  - Wrong technique in device usage process [Not Recovered/Not Resolved]
  - Injection site swelling [Recovering/Resolving]
